FAERS Safety Report 23616810 (Version 1)
Quarter: 2024Q1

REPORT INFORMATION
  Report Type: Spontaneous
  Country: NL (occurrence: NL)
  Receive Date: 20240311
  Receipt Date: 20240311
  Transmission Date: 20240410
  Serious: Yes (Death, Other)
  Sender: FDA-Public Use
  Company Number: NL-JNJFOC-20240312834

PATIENT
  Sex: Male

DRUGS (1)
  1. STELARA [Suspect]
     Active Substance: USTEKINUMAB
     Indication: Crohn^s disease
     Route: 058

REACTIONS (5)
  - Death [Fatal]
  - T-cell lymphoma [Unknown]
  - Epilepsy [Unknown]
  - Pneumonia aspiration [Unknown]
  - Hypoaesthesia [Recovered/Resolved]
